FAERS Safety Report 7271254-1 (Version None)
Quarter: 2011Q1

REPORT INFORMATION
  Report Type: 
  Country: None (occurrence: None)
  Receive Date: 20110203
  Receipt Date: 20110128
  Transmission Date: 20110831
  Serious: Yes (Life-Threatening, Hospitalization)
  Sender: FDA-Public Use
  Company Number: FR-BIOGENIDEC-2009BI031736

PATIENT
  Age: 67 Year
  Sex: Male
  Weight: 67 kg

DRUGS (15)
  1. METFORMIN [Concomitant]
  2. AMLOR [Concomitant]
  3. TYSABRI [Suspect]
     Route: 042
     Dates: start: 20091028
  4. XALATAN [Concomitant]
  5. TYSABRI [Suspect]
     Indication: MULTIPLE SCLEROSIS
     Route: 042
     Dates: start: 20070620, end: 20090624
  6. MUSCLE RELAXANTS [Concomitant]
  7. LIORESAL [Concomitant]
  8. ANTIHYPERTENSIVES [Concomitant]
  9. DICLOXACILLIN [Concomitant]
  10. PREVISCAN [Concomitant]
     Route: 048
  11. MOPRAL 20 [Concomitant]
  12. DANTRIUM [Concomitant]
  13. KARDEGIC [Concomitant]
  14. DOXAZOSIN MESYLATE [Concomitant]
  15. ANALGESIC [Concomitant]

REACTIONS (1)
  - CEREBROVASCULAR ACCIDENT [None]
